FAERS Safety Report 24967771 (Version 2)
Quarter: 2025Q3

REPORT INFORMATION
  Report Type: Report from Study
  Country: US (occurrence: US)
  Receive Date: 20250214
  Receipt Date: 20250803
  Transmission Date: 20251021
  Serious: Yes (Other)
  Sender: ALEXION PHARMACEUTICALS
  Company Number: US-AstraZeneca-CH-00802329A

PATIENT
  Sex: Male

DRUGS (1)
  1. SODIUM ZIRCONIUM CYCLOSILICATE [Suspect]
     Active Substance: SODIUM ZIRCONIUM CYCLOSILICATE
     Route: 065

REACTIONS (6)
  - Drug hypersensitivity [Unknown]
  - Chronic kidney disease [Unknown]
  - Hypokalaemia [Unknown]
  - Gout [Unknown]
  - Anaemia [Unknown]
  - Peripheral vascular disorder [Unknown]
